FAERS Safety Report 6675243-7 (Version None)
Quarter: 2010Q2

REPORT INFORMATION
  Report Type: 
  Country: None (occurrence: None)
  Receive Date: 20100409
  Receipt Date: 20100121
  Transmission Date: 20101027
  Serious: Yes (Death, Other)
  Sender: FDA-Public Use
  Company Number: AU-ORACLE-2010S1000014

PATIENT
  Age: 76 Year
  Sex: Male

DRUGS (17)
  1. CUBICIN [Suspect]
     Indication: ENTEROCOCCAL BACTERAEMIA
     Route: 042
     Dates: start: 20091202, end: 20091229
  2. CUBICIN [Suspect]
     Route: 042
     Dates: start: 20091202, end: 20091229
  3. ENOXAPARIN SODIUM [Concomitant]
  4. CARBAMAZEPINE [Concomitant]
  5. PRAVASTATIN [Concomitant]
  6. ASPIRIN [Concomitant]
  7. CLOPIDOGREL [Concomitant]
  8. CITALOPRAM HYDROBROMIDE [Concomitant]
  9. TIOTROPIUM [Concomitant]
  10. PERINDOPRIL ERBUMINE [Concomitant]
  11. COLECALCIFEROL [Concomitant]
  12. FLUTICASONE PROPIONATE W/SALMETEROL [Concomitant]
  13. ALLOPURINOL [Concomitant]
  14. FOLIC ACID [Concomitant]
  15. GLIMEPIRIDE [Concomitant]
  16. METOPROLOL TARTRATE [Concomitant]
  17. ARTIFICIAL TEARS [Concomitant]

REACTIONS (6)
  - CARDIAC ARREST [None]
  - DRUG INEFFECTIVE FOR UNAPPROVED INDICATION [None]
  - ENDOCARDITIS [None]
  - ENTEROCOCCAL BACTERAEMIA [None]
  - LOWER RESPIRATORY TRACT INFECTION [None]
  - URINARY TRACT INFECTION [None]
